FAERS Safety Report 14404799 (Version 1)
Quarter: 2018Q1

REPORT INFORMATION
  Report Type: Spontaneous
  Country: US (occurrence: US)
  Receive Date: 20180118
  Receipt Date: 20180118
  Transmission Date: 20180509
  Serious: Yes (Hospitalization, Other)
  Sender: FDA-Public Use
  Company Number: US-VISTAPHARM, INC.-VER201801-000143

PATIENT
  Age: 46 Year
  Sex: Male

DRUGS (1)
  1. HYDROCODONE AND ACETAMINOPHEN [Suspect]
     Active Substance: ACETAMINOPHEN\HYDROCODONE
     Indication: PRODUCT USED FOR UNKNOWN INDICATION
     Dosage: } 6-7 G/DAY, ADMINISTERED A WEEK PRIOR TO HOSPITALIZATION

REACTIONS (3)
  - Drug-disease interaction [Unknown]
  - Toxicity to various agents [Unknown]
  - Haemolytic anaemia [Unknown]
